FAERS Safety Report 25504635 (Version 1)
Quarter: 2025Q3

REPORT INFORMATION
  Report Type: Spontaneous
  Country: EU (occurrence: EU)
  Receive Date: 20250702
  Receipt Date: 20250702
  Transmission Date: 20251020
  Serious: Yes (Death, Other)
  Sender: SANDOZ
  Company Number: EU-NOVPHSZ-PHHY2019FR172584

PATIENT
  Sex: Male

DRUGS (19)
  1. BUSULFAN [Suspect]
     Active Substance: BUSULFAN
     Indication: Stem cell transplant
     Route: 042
  2. BUSULFAN [Suspect]
     Active Substance: BUSULFAN
     Indication: Bone marrow conditioning regimen
  3. CYCLOPHOSPHAMIDE [Suspect]
     Active Substance: CYCLOPHOSPHAMIDE
     Indication: Bone marrow conditioning regimen
     Dosage: 50 MG/KG, QD ON DAYS +3 AND +4
     Route: 065
  4. CYCLOPHOSPHAMIDE [Suspect]
     Active Substance: CYCLOPHOSPHAMIDE
     Route: 065
  5. CYCLOPHOSPHAMIDE [Suspect]
     Active Substance: CYCLOPHOSPHAMIDE
     Indication: Prophylaxis against graft versus host disease
     Route: 065
  6. FLUDARABINE [Suspect]
     Active Substance: FLUDARABINE PHOSPHATE
     Indication: Stem cell transplant
     Route: 065
  7. FLUDARABINE [Suspect]
     Active Substance: FLUDARABINE PHOSPHATE
     Dosage: 40 MG/M2, QD, 40 MG/M2 FROM DAYS -6 TO -2
     Route: 065
  8. FLUDARABINE [Suspect]
     Active Substance: FLUDARABINE PHOSPHATE
     Indication: Bone marrow conditioning regimen
     Route: 065
  9. ALEMTUZUMAB [Concomitant]
     Active Substance: ALEMTUZUMAB
     Indication: Product used for unknown indication
     Route: 065
  10. THYMOCYTE IMMUNE GLOBULIN NOS [Concomitant]
     Active Substance: THYMOCYTE IMMUNE GLOBULIN NOS
     Indication: Product used for unknown indication
     Route: 065
  11. CYCLOSPORINE [Concomitant]
     Active Substance: CYCLOSPORINE
     Route: 065
  12. CYCLOSPORINE [Concomitant]
     Active Substance: CYCLOSPORINE
     Indication: Prophylaxis against graft versus host disease
     Route: 065
  13. DEFIBROTIDE [Concomitant]
     Active Substance: DEFIBROTIDE (BOVINE)
     Indication: Prophylaxis
     Route: 065
  14. Immunoglobulin [Concomitant]
     Indication: Product used for unknown indication
     Route: 042
  15. Immunoglobulin [Concomitant]
     Indication: Supportive care
     Route: 042
  16. MYCOPHENOLATE MOFETIL [Concomitant]
     Active Substance: MYCOPHENOLATE MOFETIL
     Indication: Prophylaxis against graft versus host disease
     Route: 065
  17. MYCOPHENOLATE MOFETIL [Concomitant]
     Active Substance: MYCOPHENOLATE MOFETIL
     Route: 065
  18. RITUXIMAB [Concomitant]
     Active Substance: RITUXIMAB
     Indication: Product used for unknown indication
     Route: 065
  19. RITUXIMAB [Concomitant]
     Active Substance: RITUXIMAB
     Route: 065

REACTIONS (3)
  - Thrombotic microangiopathy [Fatal]
  - Venoocclusive disease [Fatal]
  - Product use in unapproved indication [Unknown]
